FAERS Safety Report 5011923-7 (Version None)
Quarter: 2006Q2

REPORT INFORMATION
  Report Type: 
  Country: None (occurrence: None)
  Receive Date: 20060526
  Receipt Date: 20060516
  Transmission Date: 20061013
  Serious: Yes (Other)
  Sender: FDA-Public Use
  Company Number: US-JNJFOC-20051003796

PATIENT
  Sex: Male

DRUGS (13)
  1. RISPERDAL [Suspect]
     Dates: end: 20040701
  2. RISPERDAL [Suspect]
     Dates: end: 20040701
  3. RISPERDAL [Suspect]
     Dates: end: 20040701
  4. RISPERDAL [Suspect]
     Indication: DRUG USE FOR UNKNOWN INDICATION
     Dates: end: 20040701
  5. TRILAFON [Concomitant]
  6. PAXIL [Concomitant]
  7. TRAZODONE HCL [Concomitant]
  8. BUSPAR [Concomitant]
  9. GLUCOTROL [Concomitant]
  10. GLUCOPHAGE [Concomitant]
  11. PREVACID [Concomitant]
  12. PRECOSE [Concomitant]
  13. AVANDIA [Concomitant]

REACTIONS (21)
  - AMNESIA [None]
  - ASTHMA [None]
  - BACK PAIN [None]
  - BRONCHITIS ACUTE [None]
  - CHEST PAIN [None]
  - CONJUNCTIVITIS [None]
  - DEPRESSION [None]
  - DIABETES MELLITUS NON-INSULIN-DEPENDENT [None]
  - FATIGUE [None]
  - GASTROOESOPHAGEAL REFLUX DISEASE [None]
  - HAEMORRHOIDAL HAEMORRHAGE [None]
  - HALLUCINATION, AUDITORY [None]
  - MOOD SWINGS [None]
  - PAIN IN EXTREMITY [None]
  - PNEUMONIA [None]
  - POLLAKIURIA [None]
  - RESPIRATORY FAILURE [None]
  - SCHIZOPHRENIA, PARANOID TYPE [None]
  - SUICIDAL IDEATION [None]
  - UPPER RESPIRATORY TRACT INFECTION [None]
  - WEIGHT INCREASED [None]
